FAERS Safety Report 5168332-X (Version None)
Quarter: 2006Q4

REPORT INFORMATION
  Report Type: 
  Country: None (occurrence: None)
  Receive Date: 20061208
  Receipt Date: 20061109
  Transmission Date: 20070319
  Serious: Yes (Other)
  Sender: FDA-Public Use
  Company Number: CH-ROCHE-470476

PATIENT
  Age: 28 Year
  Sex: Female

DRUGS (3)
  1. ROACCUTAN [Suspect]
     Indication: DRUG USE FOR UNKNOWN INDICATION
     Route: 048
     Dates: start: 20060930, end: 20061022
  2. ROACCUTAN [Suspect]
     Route: 048
     Dates: start: 20051015, end: 20060415
  3. ROACCUTAN [Suspect]
     Route: 048
     Dates: start: 20061023, end: 20061028

REACTIONS (3)
  - ABORTION INDUCED [None]
  - DRUG EXPOSURE DURING PREGNANCY [None]
  - PREGNANCY [None]
